FAERS Safety Report 8616562-4 (Version None)
Quarter: 2012Q3

REPORT INFORMATION
  Report Type: 
  Country: None (occurrence: None)
  Receive Date: 20120823
  Receipt Date: 20120816
  Transmission Date: 20120928
  Serious: Yes (Disabling)
  Sender: FDA-Public Use
  Company Number: FR-MERCK-1208FRA007419

PATIENT

DRUGS (3)
  1. REQUIP [Suspect]
     Indication: PARKINSON'S DISEASE
     Dosage: 4 MG, TID
     Route: 048
  2. CARBIDOPA [Suspect]
     Indication: PARKINSON'S DISEASE
     Dosage: 1 DF, TID
     Route: 048
     Dates: end: 20120709
  3. AZILECT [Suspect]
     Dosage: UNK
     Route: 048

REACTIONS (2)
  - ROTATOR CUFF SYNDROME [None]
  - BURSITIS [None]
